FAERS Safety Report 4471937-2 (Version None)
Quarter: 2004Q4

REPORT INFORMATION
  Report Type: 
  Country: None (occurrence: None)
  Receive Date: 20041007
  Receipt Date: 20040920
  Transmission Date: 20050328
  Serious: Yes (Hospitalization)
  Sender: FDA-Public Use
  Company Number: 6010634

PATIENT
  Age: 87 Year
  Sex: Female

DRUGS (2)
  1. LEVOTHYROX 175(TABLETS) (LEVOTHYROXINE SODIUM) [Suspect]
     Dosage: 1 DOSAGE, ORAL
     Route: 048
     Dates: start: 20030101
  2. LASIX [Suspect]
     Dosage: 80 MG, ORAL
     Route: 048
     Dates: start: 20030101

REACTIONS (1)
  - AGRANULOCYTOSIS [None]
